FAERS Safety Report 10748268 (Version 2)
Quarter: 2015Q1

REPORT INFORMATION
  Report Type: Spontaneous
  Country: FR (occurrence: None)
  Receive Date: 20150127
  Receipt Date: 20150211
  Transmission Date: 20150721
  Serious: Yes (Other)
  Sender: FDA-Public Use
  Company Number: FR2015GSK008594

PATIENT
  Age: 40 Year
  Sex: Female
  Weight: 62 kg

DRUGS (3)
  1. ISENTRESS [Concomitant]
     Active Substance: RALTEGRAVIR POTASSIUM
  2. TIVICAY [Suspect]
     Active Substance: DOLUTEGRAVIR SODIUM
     Indication: HIV INFECTION
     Dosage: 1 UNK, QD, ORAL
     Route: 048
     Dates: start: 201412, end: 20150109
  3. KIVEXA (ABACAVIR + LAMIVUDINE) [Concomitant]

REACTIONS (3)
  - Hepatitis acute [None]
  - Hepatocellular injury [None]
  - Hypersensitivity [None]

NARRATIVE: CASE EVENT DATE: 20150109
